FAERS Safety Report 4606720-8 (Version None)
Quarter: 2005Q1

REPORT INFORMATION
  Report Type: 
  Country: None (occurrence: None)
  Receive Date: 20050314
  Receipt Date: 20050309
  Transmission Date: 20050727
  Serious: Yes (Death, Life-Threatening, Hospitalization)
  Sender: FDA-Public Use
  Company Number: US-KINGPHARMUSA00001-K200500342

PATIENT
  Age: 73 Year
  Sex: Male

DRUGS (4)
  1. ALTACE [Suspect]
     Dosage: 12.5 MG, QD
     Route: 048
     Dates: end: 20040416
  2. ZOLOFT [Concomitant]
     Dosage: 50 MG, UNK
     Route: 048
     Dates: start: 20040318, end: 20040321
  3. OMEPRAZOL ^ACYFABRIK^ [Concomitant]
     Dosage: 40 MG, UNK
     Route: 048
     Dates: end: 20040416
  4. CALCIUM GLUCONATE [Concomitant]
     Dosage: 1,500 MG, UNK
     Route: 048
     Dates: end: 20040416

REACTIONS (8)
  - ANGINA PECTORIS [None]
  - BLOOD CREATININE INCREASED [None]
  - COLD SWEAT [None]
  - ELECTROCARDIOGRAM CHANGE [None]
  - LABORATORY TEST ABNORMAL [None]
  - MYOCARDIAL INFARCTION [None]
  - RENAL FAILURE ACUTE [None]
  - TACHYCARDIA [None]
